FAERS Safety Report 7338949-2 (Version None)
Quarter: 2011Q1

REPORT INFORMATION
  Report Type: 
  Country: None (occurrence: None)
  Receive Date: 20110308
  Receipt Date: 20110228
  Transmission Date: 20110831
  Serious: Yes (Death, Disabling)
  Sender: FDA-Public Use
  Company Number: JP-TEVA-269688ISR

PATIENT
  Age: 59 Year
  Sex: Male

DRUGS (3)
  1. ETOPOSIDE [Concomitant]
     Dates: start: 20080101, end: 20090101
  2. CARBOPLATIN [Concomitant]
     Dates: start: 20090101, end: 20090101
  3. CISPLATIN [Suspect]
     Indication: SMALL CELL LUNG CANCER STAGE UNSPECIFIED
     Dates: start: 20080101, end: 20080101

REACTIONS (3)
  - DEMENTIA [None]
  - CEREBRAL ATROPHY [None]
  - NERVOUS SYSTEM DISORDER [None]
